FAERS Safety Report 25879463 (Version 1)
Quarter: 2025Q4

REPORT INFORMATION
  Report Type: Report from Study
  Country: US (occurrence: US)
  Receive Date: 20251003
  Receipt Date: 20251003
  Transmission Date: 20260118
  Serious: Yes (Hospitalization)
  Sender: EISAI
  Company Number: US-Eisai-EC-2025-196002

PATIENT
  Age: 73 Year
  Sex: Male
  Weight: 72.04 kg

DRUGS (5)
  1. LENVIMA [Suspect]
     Active Substance: LENVATINIB
     Indication: Hepatic cancer
     Route: 048
     Dates: start: 202508, end: 20250829
  2. TRELEGY ELLIPTA [Concomitant]
     Active Substance: FLUTICASONE FUROATE\UMECLIDINIUM BROMIDE\VILANTEROL TRIFENATATE
  3. ASPIRIN [Concomitant]
     Active Substance: ASPIRIN
  4. DOXYCYCLINE [Concomitant]
     Active Substance: DOXYCYCLINE
  5. ENTECAVIR [Concomitant]
     Active Substance: ENTECAVIR

REACTIONS (4)
  - Colitis [Recovering/Resolving]
  - Gastrooesophageal reflux disease [Recovering/Resolving]
  - Hypertension [Recovering/Resolving]
  - Abdominal pain upper [Unknown]

NARRATIVE: CASE EVENT DATE: 20250101
